FAERS Safety Report 7670819-2 (Version None)
Quarter: 2011Q3

REPORT INFORMATION
  Report Type: 
  Country: None (occurrence: None)
  Receive Date: 20110809
  Receipt Date: 20110720
  Transmission Date: 20111222
  Serious: Yes (Hospitalization, Other)
  Sender: FDA-Public Use
  Company Number: DE-AMGEN-DEUSP2011036512

PATIENT
  Age: 18 Year
  Sex: Female

DRUGS (1)
  1. NPLATE [Suspect]
     Indication: THROMBOCYTOPENIA
     Dosage: UNK
     Dates: start: 20110713

REACTIONS (7)
  - PORTAL VEIN THROMBOSIS [None]
  - HYPERCOAGULATION [None]
  - MESENTERIC VEIN THROMBOSIS [None]
  - ABDOMINAL DISCOMFORT [None]
  - PLATELET COUNT DECREASED [None]
  - VENA CAVA THROMBOSIS [None]
  - GASTROINTESTINAL HAEMORRHAGE [None]
